FAERS Safety Report 14299771 (Version 1)
Quarter: 2017Q4

REPORT INFORMATION
  Report Type: Spontaneous
  Country: FR (occurrence: FR)
  Receive Date: 20171219
  Receipt Date: 20171219
  Transmission Date: 20180321
  Serious: Yes (Hospitalization, Other)
  Sender: FDA-Public Use
  Company Number: FR-AUROBINDO-AUR-APL-2017-45618

PATIENT
  Age: 58 Year
  Sex: Female

DRUGS (5)
  1. ATACAND D [Suspect]
     Active Substance: CANDESARTAN CILEXETIL\HYDROCHLOROTHIAZIDE
     Indication: HYPERTENSION
     Dosage: 8 MG, QD
     Route: 048
     Dates: start: 20080605, end: 20080611
  2. IMPORTAL [Suspect]
     Active Substance: LACTITOL
     Indication: CONSTIPATION
     Dosage: 1 OR 2 DF PRN
     Route: 048
     Dates: end: 20080611
  3. PARACETAMOL [Suspect]
     Active Substance: ACETAMINOPHEN
     Indication: PAIN
     Dosage: UNK, PRN
     Route: 048
     Dates: end: 20080611
  4. VOLTAREN [Suspect]
     Active Substance: DICLOFENAC SODIUM
     Indication: PAIN
     Dosage: UNK UNK, PRN
     Route: 061
     Dates: end: 20080611
  5. PROTELOS [Suspect]
     Active Substance: STRONTIUM RANELATE
     Indication: OSTEOPOROSIS
     Dosage: 2 G, QD
     Route: 048
     Dates: start: 20080427, end: 20080602

REACTIONS (10)
  - Vision blurred [Recovered/Resolved]
  - Headache [Unknown]
  - Hepatocellular injury [Recovering/Resolving]
  - Cholestasis [Recovering/Resolving]
  - Orthostatic hypotension [Recovered/Resolved]
  - Myalgia [Unknown]
  - Tinnitus [Not Recovered/Not Resolved]
  - General physical health deterioration [Unknown]
  - Drug reaction with eosinophilia and systemic symptoms [Recovered/Resolved]
  - Hypertension [Unknown]

NARRATIVE: CASE EVENT DATE: 200806
